FAERS Safety Report 5872465-X (Version None)
Quarter: 2008Q3

REPORT INFORMATION
  Report Type: 
  Country: None (occurrence: None)
  Receive Date: 20080905
  Receipt Date: 20080828
  Transmission Date: 20090109
  Serious: Yes (Other)
  Sender: FDA-Public Use
  Company Number: PHHY2008CN19529

PATIENT
  Sex: Male

DRUGS (1)
  1. MIACALCIN [Suspect]
     Indication: OSTEOPOROSIS
     Dosage: BID

REACTIONS (2)
  - DRUG ADMINISTRATION ERROR [None]
  - SHOCK [None]
